FAERS Safety Report 5272609-7 (Version None)
Quarter: 2007Q1

REPORT INFORMATION
  Report Type: 
  Country: None (occurrence: None)
  Receive Date: 20070320
  Receipt Date: 20070320
  Transmission Date: 20070707
  Serious: Yes (Life-Threatening, Hospitalization, Other)
  Sender: FDA-Public Use
  Company Number: None

PATIENT
  Age: 32 Year
  Sex: Female
  Weight: 68.0396 kg

DRUGS (1)
  1. PREDNISONE [Suspect]

REACTIONS (23)
  - ACTIVITIES OF DAILY LIVING IMPAIRED [None]
  - ADDISON'S DISEASE [None]
  - ANXIETY [None]
  - BEDRIDDEN [None]
  - BLOOD GLUCOSE DECREASED [None]
  - BLOOD GLUCOSE INCREASED [None]
  - DIARRHOEA [None]
  - DIPLOPIA [None]
  - DIZZINESS [None]
  - DYSPHAGIA [None]
  - GASTRITIS [None]
  - HEADACHE [None]
  - HYPERSENSITIVITY [None]
  - HYPERTENSION [None]
  - HYPOKALAEMIA [None]
  - HYPONATRAEMIA [None]
  - HYPOTENSION [None]
  - LOSS OF EMPLOYMENT [None]
  - OESOPHAGITIS [None]
  - PRURITUS [None]
  - RASH [None]
  - TREMOR [None]
  - WEIGHT DECREASED [None]
